FAERS Safety Report 8257417-7 (Version None)
Quarter: 2012Q1

REPORT INFORMATION
  Report Type: 
  Country: None (occurrence: None)
  Receive Date: 20120330
  Receipt Date: 20120330
  Transmission Date: 20120608
  Serious: Yes (Other)
  Sender: FDA-Public Use
  Company Number: None

PATIENT
  Sex: Female
  Weight: 54.8852 kg

DRUGS (2)
  1. DOXYCYCLINE HYCLATE [Suspect]
     Indication: INFECTION
     Dosage: 100 MG TWICE A DAY 14 DAYS
     Dates: start: 20120222
  2. METRONIDAZOLE [Suspect]
     Indication: INFECTION
     Dosage: 500 MG TWICE A DAY 14 DAYS
     Dates: start: 20120222

REACTIONS (4)
  - NAUSEA [None]
  - HYPERSENSITIVITY [None]
  - PRURITUS [None]
  - HEADACHE [None]
